FAERS Safety Report 6179667-6 (Version None)
Quarter: 2009Q2

REPORT INFORMATION
  Report Type: 
  Country: None (occurrence: None)
  Receive Date: 20090505
  Receipt Date: 20090427
  Transmission Date: 20091009
  Serious: Yes (Hospitalization, Other)
  Sender: FDA-Public Use
  Company Number: PHHY2009BR16259

PATIENT
  Age: 43 Year
  Sex: Male

DRUGS (4)
  1. TEGRETOL [Suspect]
     Dosage: 10 TABLETS
     Route: 048
  2. HALOPERIDOL [Concomitant]
     Dosage: 10 TABLETS
     Route: 048
  3. CHLORPROMAZINE [Concomitant]
     Dosage: 10 TABLETS
     Route: 048
  4. BIPERIDEN HYDROCHLORIDE TAB [Concomitant]
     Dosage: 10 TABLETS
     Route: 048

REACTIONS (3)
  - DEPRESSED LEVEL OF CONSCIOUSNESS [None]
  - EXTRAPYRAMIDAL DISORDER [None]
  - OVERDOSE [None]
